FAERS Safety Report 7868307-3 (Version None)
Quarter: 2011Q4

REPORT INFORMATION
  Report Type: 
  Country: None (occurrence: None)
  Receive Date: 20111028
  Receipt Date: 20111021
  Transmission Date: 20120403
  Serious: Yes (Other)
  Sender: FDA-Public Use
  Company Number: US-US-EMD SERONO, INC.-232368J10USA

PATIENT
  Sex: Female
  Weight: 84 kg

DRUGS (6)
  1. REBIF [Suspect]
     Route: 058
     Dates: start: 20100720
  2. REBIF [Suspect]
     Route: 058
     Dates: start: 20100101
  3. REBIF [Suspect]
     Indication: MULTIPLE SCLEROSIS
     Route: 058
     Dates: start: 20081210, end: 20100201
  4. ANTIDEPRESSANT [Concomitant]
  5. TYLENOL-500 [Concomitant]
     Indication: PREMEDICATION
  6. REBIF [Suspect]
     Route: 058
     Dates: start: 20100101, end: 20100101

REACTIONS (5)
  - ABDOMINAL PAIN [None]
  - HEPATIC CYST [None]
  - NAUSEA [None]
  - PAIN [None]
  - INJECTION SITE REACTION [None]
